FAERS Safety Report 13668351 (Version 1)
Quarter: 2017Q2

REPORT INFORMATION
  Report Type: Spontaneous
  Country: US (occurrence: US)
  Receive Date: 20170619
  Receipt Date: 20170619
  Transmission Date: 20170830
  Serious: Yes (Life-Threatening)
  Sender: FDA-Public Use
  Company Number: None

PATIENT
  Age: 75 Year
  Sex: Female
  Weight: 108.9 kg

DRUGS (10)
  1. TEMAZEPAM. [Concomitant]
     Active Substance: TEMAZEPAM
  2. DOXAZOSIN [Concomitant]
     Active Substance: DOXAZOSIN\DOXAZOSIN MESYLATE
  3. BENADRYL [Concomitant]
     Active Substance: DIPHENHYDRAMINE HYDROCHLORIDE
  4. FELODIPINE. [Concomitant]
     Active Substance: FELODIPINE
  5. LEVOTHYROXINE. [Concomitant]
     Active Substance: LEVOTHYROXINE
  6. SINGULAIR [Concomitant]
     Active Substance: MONTELUKAST SODIUM
  7. MUCINEX [Concomitant]
     Active Substance: GUAIFENESIN
  8. AMIODARONE HCL [Suspect]
     Active Substance: AMIODARONE HYDROCHLORIDE
     Indication: ATRIAL FIBRILLATION
     Dosage: ?          QUANTITY:1 TABLET(S);?
     Route: 048
     Dates: start: 20170322, end: 20170605
  9. CYCOBENZAPRINE [Concomitant]
  10. VALSARTAN. [Concomitant]
     Active Substance: VALSARTAN

REACTIONS (14)
  - Swelling face [None]
  - Gait disturbance [None]
  - Peripheral swelling [None]
  - Nervousness [None]
  - Eye pain [None]
  - Cough [None]
  - Tremor [None]
  - Dysgeusia [None]
  - Dizziness [None]
  - Dry eye [None]
  - Halo vision [None]
  - Back pain [None]
  - Fatigue [None]
  - Diarrhoea [None]

NARRATIVE: CASE EVENT DATE: 20170420
